FAERS Safety Report 16342227 (Version 11)
Quarter: 2019Q3

REPORT INFORMATION
  Report Type: Report from Study
  Country: US (occurrence: US)
  Receive Date: 20190522
  Receipt Date: 20190930
  Transmission Date: 20191004
  Serious: Yes (Other)
  Sender: FDA-Public Use
  Company Number: US-TESARO-2019-TSO01657-US

PATIENT
  Age: 61 Year
  Sex: Female

DRUGS (7)
  1. NIRAPARIB [Suspect]
     Active Substance: NIRAPARIB
     Indication: OVARIAN CANCER
  2. NIRAPARIB [Suspect]
     Active Substance: NIRAPARIB
     Indication: METASTASES TO ABDOMINAL CAVITY
     Dosage: 300 MG, QPM WITHOUT FOOD
     Route: 048
     Dates: start: 20190419, end: 20190502
  3. ZOLOFT [Concomitant]
     Active Substance: SERTRALINE HYDROCHLORIDE
     Indication: PRODUCT USED FOR UNKNOWN INDICATION
     Dosage: 25 MG, HS
  4. OXYCODONE [Concomitant]
     Active Substance: OXYCODONE
     Indication: PRODUCT USED FOR UNKNOWN INDICATION
     Dosage: 5 MG, PRN
  5. ONDANSETRON [Concomitant]
     Active Substance: ONDANSETRON
     Indication: PRODUCT USED FOR UNKNOWN INDICATION
     Dosage: 8 MG, Q8H
  6. TRAMADOL. [Concomitant]
     Active Substance: TRAMADOL
     Indication: PRODUCT USED FOR UNKNOWN INDICATION
     Dosage: 50 MG, PRN
  7. COMPAZINE                          /00013302/ [Concomitant]
     Active Substance: PROCHLORPERAZINE EDISYLATE
     Indication: PRODUCT USED FOR UNKNOWN INDICATION
     Dosage: 10 MG, PRN

REACTIONS (22)
  - Anxiety [Unknown]
  - Decreased appetite [Unknown]
  - Fatigue [Unknown]
  - Insomnia [Unknown]
  - Rash [Unknown]
  - Gastric ulcer [Not Recovered/Not Resolved]
  - Asthenia [Not Recovered/Not Resolved]
  - Product use in unapproved indication [Unknown]
  - Pain [Not Recovered/Not Resolved]
  - Malaise [Unknown]
  - Dysphagia [Recovered/Resolved]
  - Red blood cell count decreased [Unknown]
  - Product use issue [Unknown]
  - Memory impairment [Unknown]
  - Weight decreased [Unknown]
  - Depression [Unknown]
  - Eating disorder [Recovered/Resolved]
  - Back pain [Unknown]
  - Constipation [Not Recovered/Not Resolved]
  - Nausea [Recovering/Resolving]
  - Product use complaint [Unknown]
  - Headache [Unknown]

NARRATIVE: CASE EVENT DATE: 201904
